FAERS Safety Report 17560997 (Version 1)
Quarter: 2020Q1

REPORT INFORMATION
  Report Type: Spontaneous
  Country: EG (occurrence: EG)
  Receive Date: 20200319
  Receipt Date: 20200319
  Transmission Date: 20200409
  Serious: Yes (Death)
  Sender: FDA-Public Use
  Company Number: EG-MYLANLABS-2020M1029516

PATIENT
  Age: 14 Year

DRUGS (2)
  1. EPINEPHRINE. [Suspect]
     Active Substance: EPINEPHRINE
     Indication: CARDIAC FAILURE
     Dosage: UNK
     Route: 065
  2. NOREPINEPHRINE. [Suspect]
     Active Substance: NOREPINEPHRINE
     Indication: CARDIAC FAILURE
     Dosage: UNK
     Route: 065

REACTIONS (1)
  - Drug ineffective [Fatal]
